FAERS Safety Report 7845917-0 (Version None)
Quarter: 2011Q4

REPORT INFORMATION
  Report Type: 
  Country: None (occurrence: None)
  Receive Date: 20111025
  Receipt Date: 20110310
  Transmission Date: 20120403
  Serious: No
  Sender: FDA-Public Use
  Company Number: US-BAYER-2011-021681

PATIENT
  Age: 72 Year
  Sex: Female

DRUGS (1)
  1. MAGNEVIST [Suspect]
     Indication: NUCLEAR MAGNETIC RESONANCE IMAGING BRAIN
     Dosage: 50 ML, ONCE
     Dates: start: 20110308

REACTIONS (4)
  - PRURITUS [None]
  - BLOOD PRESSURE INCREASED [None]
  - ANXIETY [None]
  - URTICARIA [None]
